FAERS Safety Report 9525684 (Version 1)
Quarter: 2013Q3

REPORT INFORMATION
  Report Type: Report from Study
  Country: GB (occurrence: GB)
  Receive Date: 20130916
  Receipt Date: 20130916
  Transmission Date: 20140515
  Serious: Yes (Hospitalization)
  Sender: FDA-Public Use
  Company Number: GB-AMGEN-GBRCT2013064540

PATIENT
  Age: 50 Year
  Sex: Male
  Weight: 105 kg

DRUGS (8)
  1. ETANERCEPT [Suspect]
     Indication: PRODUCT USED FOR UNKNOWN INDICATION
     Dosage: 50 MG, WEEKLY
     Route: 065
     Dates: start: 20121105
  2. FUROSEMIDE [Concomitant]
     Dosage: UNK
     Dates: start: 19990701
  3. RAMIPRIL [Concomitant]
     Dosage: UNK
     Dates: start: 20000701
  4. VITAMIN D                          /00107901/ [Concomitant]
     Dosage: UNK
     Dates: start: 19990701
  5. QUININE SULPHATE [Concomitant]
     Dosage: UNK
     Dates: start: 19990701
  6. QUININE [Concomitant]
     Dosage: UNK
     Dates: start: 20120701
  7. OMEPRAZOLE [Concomitant]
     Dosage: UNK
     Dates: start: 19990701
  8. SPIRONOLACTONE [Concomitant]
     Dosage: UNK
     Dates: start: 19990701

REACTIONS (1)
  - Muscle spasms [Recovered/Resolved]
